FAERS Safety Report 4553408-8 (Version None)
Quarter: 2005Q1

REPORT INFORMATION
  Report Type: 
  Country: None (occurrence: None)
  Receive Date: 20050112
  Receipt Date: 20041230
  Transmission Date: 20050727
  Serious: Yes (Other)
  Sender: FDA-Public Use
  Company Number: 2004102133

PATIENT
  Sex: Male

DRUGS (1)
  1. CELEBREX [Suspect]
     Indication: ILL-DEFINED DISORDER

REACTIONS (3)
  - DIARRHOEA [None]
  - DRUG INTERACTION [None]
  - RECTAL HAEMORRHAGE [None]
